FAERS Safety Report 8367223-0 (Version None)
Quarter: 2012Q2

REPORT INFORMATION
  Report Type: 
  Country: None (occurrence: None)
  Receive Date: 20120517
  Receipt Date: 20120426
  Transmission Date: 20120825
  Serious: Yes (Other)
  Sender: FDA-Public Use
  Company Number: PHHY2012DK006938

PATIENT
  Sex: Female

DRUGS (14)
  1. METHOTREXATE [Suspect]
     Indication: RHEUMATOID ARTHRITIS
     Dosage: 5 MG, QW
     Route: 048
     Dates: start: 20071121, end: 20080528
  2. ACETAMINOPHEN [Concomitant]
     Dosage: 1 G, UNK
     Route: 048
  3. METHOTREXATE SODIUM [Suspect]
     Indication: RHEUMATOID ARTHRITIS
     Dosage: 15 MG, QW
     Route: 058
     Dates: start: 20100129, end: 20100412
  4. METHOTREXATE SODIUM [Suspect]
     Dosage: 20 MG, QW
     Route: 058
     Dates: start: 20100412, end: 20100423
  5. METHOTREXATE [Suspect]
     Dosage: 15 MG, QW
     Route: 048
     Dates: start: 20080829, end: 20100128
  6. METHOTREXATE SODIUM [Suspect]
     Dosage: 10 MG, QW
     Route: 058
     Dates: start: 20120124
  7. AXELLUS [Concomitant]
     Indication: OSTEOPOROSIS
     Dosage: 1 DF, QD
     Dates: start: 20040101
  8. METHOTREXATE [Suspect]
     Dosage: 10 MG, QW
     Route: 048
     Dates: start: 20080528, end: 20080829
  9. ALENDRONATE SODIUM [Concomitant]
     Indication: OSTEOPOROSIS
     Dosage: 70 UG, QW
     Route: 048
     Dates: start: 20040101
  10. PANTOPRAZOLE [Concomitant]
     Dosage: 40 MG, QD
     Dates: start: 20090101
  11. METHOTREXATE SODIUM [Suspect]
     Dosage: 10 MG, QW
     Route: 058
     Dates: start: 20110523, end: 20110704
  12. HUMIRA [Suspect]
     Indication: RHEUMATOID ARTHRITIS
     Dosage: 40 MG, BIW
     Dates: start: 20110215, end: 20110709
  13. METHOTREXATE SODIUM [Suspect]
     Dosage: 25 MG, QW
     Route: 058
     Dates: start: 20100423, end: 20110523
  14. CALCIUM WITH VITAMIN D [Concomitant]
     Indication: OSTEOPOROSIS
     Dates: start: 20040101

REACTIONS (3)
  - ALANINE AMINOTRANSFERASE INCREASED [None]
  - CARCINOID TUMOUR PULMONARY [None]
  - HEPATIC ENZYME INCREASED [None]
